FAERS Safety Report 4836254-7 (Version None)
Quarter: 2005Q4

REPORT INFORMATION
  Report Type: 
  Country: None (occurrence: None)
  Receive Date: 20051123
  Receipt Date: 20051102
  Transmission Date: 20060501
  Serious: Yes (Other)
  Sender: FDA-Public Use
  Company Number: PHBS2005JP16327

PATIENT
  Age: 42 Year
  Sex: Female

DRUGS (6)
  1. CYCLOSPORINE [Suspect]
     Indication: BEHCET'S SYNDROME
     Dosage: 200 MG/D
     Route: 048
     Dates: start: 20031101, end: 20040301
  2. CYCLOSPORINE [Suspect]
     Dosage: 120 MG/D
     Route: 048
     Dates: end: 20041205
  3. CYCLOSPORINE [Suspect]
     Dosage: 120 MG/D
     Route: 048
     Dates: start: 20041207
  4. COLCHICINE [Suspect]
     Indication: BEHCET'S SYNDROME
     Dosage: 1 MG/D
     Route: 048
     Dates: start: 20020101, end: 20041207
  5. PREDNISOLONE [Suspect]
     Indication: BEHCET'S SYNDROME
     Dosage: 12.5 MG/D
     Route: 048
     Dates: start: 20000101, end: 20020101
  6. PREDNISOLONE [Suspect]
     Route: 048
     Dates: start: 20020101

REACTIONS (6)
  - BLOOD CREATINE PHOSPHOKINASE INCREASED [None]
  - HYPOAESTHESIA [None]
  - MUSCULAR WEAKNESS [None]
  - MYALGIA [None]
  - MYOPATHY [None]
  - NEURALGIA [None]
